FAERS Safety Report 10027880 (Version 1)
Quarter: 2014Q1

REPORT INFORMATION
  Report Type: Report from Study
  Country: US (occurrence: US)
  Receive Date: 20140321
  Receipt Date: 20140321
  Transmission Date: 20141002
  Serious: Yes (Other)
  Sender: FDA-Public Use
  Company Number: US-ABBVIE-14P-163-1213514-00

PATIENT
  Sex: Female
  Weight: 54.48 kg

DRUGS (2)
  1. LUPRON DEPOT [Suspect]
     Indication: ENDOMETRIOSIS
     Route: 030
     Dates: start: 2011, end: 2011
  2. LUPRON DEPOT [Suspect]
     Indication: ENDOMETRIOSIS
     Route: 030
     Dates: start: 2009, end: 2009

REACTIONS (12)
  - Foot fracture [Recovered/Resolved]
  - Endometriosis [Not Recovered/Not Resolved]
  - Endometriosis [Recovered/Resolved]
  - Pain [Unknown]
  - White blood cell count increased [Recovered/Resolved]
  - Hot flush [Recovered/Resolved]
  - Fatigue [Recovered/Resolved]
  - Cold sweat [Recovered/Resolved]
  - Hot flush [Recovered/Resolved]
  - Fatigue [Recovered/Resolved]
  - Cold sweat [Recovered/Resolved]
  - Endometriosis [Not Recovered/Not Resolved]
